FAERS Safety Report 5733242-3 (Version None)
Quarter: 2008Q2

REPORT INFORMATION
  Report Type: 
  Country: None (occurrence: None)
  Receive Date: 20080509
  Receipt Date: 20080430
  Transmission Date: 20081010
  Serious: Yes (Life-Threatening)
  Sender: FDA-Public Use
  Company Number: FR-ABBOTT-08P-056-0449921-00

PATIENT
  Sex: Male

DRUGS (4)
  1. NORVIR [Suspect]
     Indication: HIV INFECTION
     Dosage: 100 MG DAILY
     Route: 048
     Dates: start: 20080221, end: 20080311
  2. TENOFOVIR [Suspect]
     Indication: HIV INFECTION
     Dosage: 245 MG/KG DAILY
     Route: 048
     Dates: start: 20080221, end: 20080311
  3. ATAZANAVIR SULFATE [Suspect]
     Indication: HIV INFECTION
     Dosage: 300 MG DAILY
     Route: 048
     Dates: start: 20080221, end: 20080311
  4. FLUCONAZOLE [Concomitant]
     Indication: ORAL CANDIDIASIS
     Dosage: 100 MG DAILY
     Route: 048
     Dates: start: 20080221, end: 20080306

REACTIONS (4)
  - GLYCOSURIA [None]
  - PROTEINURIA [None]
  - RENAL FAILURE [None]
  - RENAL TUBULAR DISORDER [None]
